FAERS Safety Report 9128297 (Version 1)
Quarter: 2013Q1

REPORT INFORMATION
  Report Type: Spontaneous
  Country: DE (occurrence: FR)
  Receive Date: 20130125
  Receipt Date: 20130125
  Transmission Date: 20140127
  Serious: Yes (Hospitalization)
  Sender: FDA-Public Use
  Company Number: FR-FRI-1000041965

PATIENT
  Age: 70 Year
  Sex: Female

DRUGS (8)
  1. MEMANTINE [Suspect]
     Route: 048
  2. ISOPTINE [Suspect]
  3. EXELON [Suspect]
     Route: 048
  4. RISPERDAL [Suspect]
     Route: 048
  5. SIMVASTATINE [Concomitant]
     Route: 048
  6. KARDEGIC [Concomitant]
     Route: 048
  7. ATARAX [Concomitant]
     Route: 048
  8. STILNOX [Concomitant]
     Route: 048

REACTIONS (3)
  - Hypotension [Recovered/Resolved]
  - Bradycardia [Recovered/Resolved]
  - Musculoskeletal stiffness [Recovered/Resolved]
